FAERS Safety Report 9250439 (Version 1)
Quarter: 2013Q1

REPORT INFORMATION
  Report Type: Spontaneous
  Country: US (occurrence: None)
  Receive Date: 20130305
  Receipt Date: 20130305
  Transmission Date: 20140127
  Serious: Yes (Other)
  Sender: FDA-Public Use
  Company Number: 163-21880-12042771

PATIENT
  Age: 82 Year
  Sex: Female
  Weight: 40.82 kg

DRUGS (2)
  1. REVLIMID [Suspect]
     Indication: CHRONIC LYMPHOCYTIC LEUKAEMIA
     Dosage: 5 MG, X 21 DAYS ON, 7 OFF, PO
     Route: 048
     Dates: start: 20120324
  2. BOOST/ENSURE (BOOST) [Concomitant]

REACTIONS (4)
  - Syncope [None]
  - Decreased appetite [None]
  - Asthenia [None]
  - Weight decreased [None]
